FAERS Safety Report 8333271-X (Version None)
Quarter: 2012Q2

REPORT INFORMATION
  Report Type: 
  Country: None (occurrence: None)
  Receive Date: 20120503
  Receipt Date: 20120425
  Transmission Date: 20120825
  Serious: Yes (Other)
  Sender: FDA-Public Use
  Company Number: US-ASTELLAS-2012US004242

PATIENT
  Age: 62 Year
  Sex: Female

DRUGS (1)
  1. PROGRAF [Suspect]
     Indication: RENAL TRANSPLANT
     Dosage: 2 MG, BID
     Route: 065

REACTIONS (4)
  - MACULAR DEGENERATION [None]
  - VISION BLURRED [None]
  - DRY MOUTH [None]
  - ALOPECIA [None]
